FAERS Safety Report 23267802 (Version 1)
Quarter: 2023Q4

REPORT INFORMATION
  Report Type: Spontaneous
  Country: US (occurrence: US)
  Receive Date: 20231206
  Receipt Date: 20231206
  Transmission Date: 20240110
  Serious: No
  Sender: FDA-Public Use
  Company Number: US-Amarin Pharma  Inc-2023AMR000471

PATIENT
  Age: 69 Year
  Sex: Female

DRUGS (7)
  1. VASCEPA [Suspect]
     Active Substance: ICOSAPENT ETHYL
     Indication: Blood triglycerides increased
     Route: 048
  2. TOPAMAX [Concomitant]
     Active Substance: TOPIRAMATE
  3. OMEPRAZOLE [Concomitant]
     Active Substance: OMEPRAZOLE
  4. COZAAR [Concomitant]
     Active Substance: LOSARTAN POTASSIUM
     Dosage: HAD ONE TIME
  5. ZOLOFT [Concomitant]
     Active Substance: SERTRALINE HYDROCHLORIDE
     Indication: Product used for unknown indication
  6. TRICOR [Concomitant]
     Active Substance: FENOFIBRATE
     Indication: Blood triglycerides
  7. EFFEXOR [Concomitant]
     Active Substance: VENLAFAXINE HYDROCHLORIDE
     Indication: Product used for unknown indication

REACTIONS (5)
  - Blood triglycerides increased [Unknown]
  - Drug ineffective [Unknown]
  - Poor quality product administered [Unknown]
  - Product physical issue [Unknown]
  - Product odour abnormal [Unknown]
